FAERS Safety Report 9222436 (Version 2)
Quarter: 2013Q4

REPORT INFORMATION
  Report Type: Spontaneous
  Country: US (occurrence: US)
  Receive Date: 20130410
  Receipt Date: 20131008
  Transmission Date: 20140711
  Serious: Yes (Hospitalization)
  Sender: FDA-Public Use
  Company Number: US-BAYER-2013-043665

PATIENT
  Age: 49 Year
  Sex: Female
  Weight: 131.7 kg

DRUGS (1)
  1. YASMIN [Suspect]
     Dosage: UNK
     Dates: start: 200501, end: 201108

REACTIONS (7)
  - Pulmonary embolism [None]
  - Injury [None]
  - Pain [None]
  - Emotional distress [None]
  - Depression [None]
  - Fear of death [None]
  - Nervousness [None]
